FAERS Safety Report 7819756-0 (Version None)
Quarter: 2011Q4

REPORT INFORMATION
  Report Type: 
  Country: None (occurrence: None)
  Receive Date: 20111018
  Receipt Date: 20101005
  Transmission Date: 20120403
  Serious: No
  Sender: FDA-Public Use
  Company Number: US-ASTRAZENECA-2010SE46998

PATIENT
  Sex: Male

DRUGS (1)
  1. SYMBICORT [Suspect]
     Dosage: 160/4.5 MCG TWO PUFFS TWICE DAILY
     Route: 055

REACTIONS (2)
  - CONDITION AGGRAVATED [None]
  - DRUG DOSE OMISSION [None]
